FAERS Safety Report 5090399-8 (Version None)
Quarter: 2006Q3

REPORT INFORMATION
  Report Type: 
  Country: None (occurrence: None)
  Receive Date: 20060823
  Receipt Date: 20060816
  Transmission Date: 20061208
  Serious: Yes (Hospitalization, Other)
  Sender: FDA-Public Use
  Company Number: 2006-06-1038

PATIENT
  Age: 58 Year
  Sex: Male
  Weight: 77.1115 kg

DRUGS (7)
  1. PEG-INTRON [Suspect]
     Indication: HEPATITIS C
     Dosage: 120 MCQ QWK SUBCUTANEOUS
     Route: 058
     Dates: start: 20060310, end: 20060714
  2. RIBASPHERE [Suspect]
     Indication: HEPATITIS C
     Dosage: 1000 MG QD ORAL
     Route: 048
     Dates: start: 20060310, end: 20060714
  3. SULFATRIM DS TABLETS [Concomitant]
  4. PLAVIX [Concomitant]
  5. ZIAC [Concomitant]
  6. AMITRIPTYLINE HCL [Concomitant]
  7. CIPROFLOXACIN [Concomitant]

REACTIONS (10)
  - AGEUSIA [None]
  - CHILLS [None]
  - IMPAIRED HEALING [None]
  - LEG AMPUTATION [None]
  - NAUSEA [None]
  - ORAL PAIN [None]
  - PYREXIA [None]
  - SKIN ULCER [None]
  - SUPERINFECTION [None]
  - VOMITING [None]
